FAERS Safety Report 17197525 (Version 2)
Quarter: 2020Q1

REPORT INFORMATION
  Report Type: Report from Study
  Country: CZ (occurrence: CZ)
  Receive Date: 20191224
  Receipt Date: 20200123
  Transmission Date: 20200409
  Serious: Yes (Life-Threatening, Hospitalization)
  Sender: FDA-Public Use
  Company Number: CZ-CELLTRION INC.-2019CZ027553

PATIENT

DRUGS (8)
  1. SANGONA [Concomitant]
     Dosage: 50 MG 1-0-0
  2. PREDNISONE. [Concomitant]
     Active Substance: PREDNISONE
     Dosage: 10 MG 1-0-0 EVERY SECOND DAY (NEPHROLOGICAL INDICATION)
  3. ASACOL [Concomitant]
     Active Substance: MESALAMINE
     Dosage: 800 MG 3-0-0
  4. ORTANOL [OMEPRAZOLE] [Concomitant]
     Dosage: 20 MG
  5. UBRETID [Concomitant]
     Active Substance: DISTIGMINE BROMIDE
     Dosage: 1/DAY - LONG-TERM TREATMENT.
  6. OMNIC [Concomitant]
     Active Substance: TAMSULOSIN HYDROCHLORIDE
     Dosage: 1/DAY
  7. REMSIMA [Suspect]
     Active Substance: INFLIXIMAB
     Indication: CROHN^S DISEASE
     Dosage: ABOVE 5 MG/KG, ADMINISTRATION OF 4 AMPOULES
     Route: 065
  8. MAGNOSOLV [Concomitant]
     Dosage: 5-TIMES A WEEK

REACTIONS (2)
  - Ileus [Recovered/Resolved]
  - Overdose [Unknown]

NARRATIVE: CASE EVENT DATE: 20191107
